FAERS Safety Report 16361264 (Version 1)
Quarter: 2019Q2

REPORT INFORMATION
  Report Type: Report from Study
  Country: IE (occurrence: IE)
  Receive Date: 20190528
  Receipt Date: 20190528
  Transmission Date: 20190711
  Serious: Yes (Other)
  Sender: FDA-Public Use
  Company Number: IE-JNJFOC-20181235229

PATIENT
  Age: 60 Year
  Sex: Male

DRUGS (12)
  1. LYRICA [Concomitant]
     Active Substance: PREGABALIN
     Route: 050
  2. CALCICHEW [Concomitant]
     Active Substance: CALCIUM CARBONATE
     Route: 050
  3. SEVREDOL [Concomitant]
     Active Substance: MORPHINE
     Route: 050
  4. XANAX [Concomitant]
     Active Substance: ALPRAZOLAM
     Route: 050
  5. PREDNISOLONE. [Concomitant]
     Active Substance: PREDNISOLONE
     Route: 050
  6. ZOPITAN [Concomitant]
     Active Substance: ZOPICLONE
     Route: 050
  7. CANDESARTAN. [Concomitant]
     Active Substance: CANDESARTAN
     Route: 050
  8. ZYTIGA [Suspect]
     Active Substance: ABIRATERONE ACETATE
     Indication: PROSTATE CANCER
     Route: 048
     Dates: start: 20161212
  9. FEROGRAD [Concomitant]
     Active Substance: ASCORBIC ACID\FERROUS SULFATE
     Route: 050
  10. RANITIDINE. [Concomitant]
     Active Substance: RANITIDINE
     Route: 050
  11. BISOPROLOL [Concomitant]
     Active Substance: BISOPROLOL
     Route: 050
  12. AMLOR [Concomitant]
     Active Substance: AMLODIPINE BESYLATE
     Route: 050

REACTIONS (2)
  - Tooth abscess [Not Recovered/Not Resolved]
  - Bone disorder [Not Recovered/Not Resolved]

NARRATIVE: CASE EVENT DATE: 20181213
